FAERS Safety Report 5233244-X (Version None)
Quarter: 2007Q1

REPORT INFORMATION
  Report Type: 
  Country: None (occurrence: None)
  Receive Date: 20070206
  Receipt Date: 20070124
  Transmission Date: 20070707
  Serious: Yes (Other)
  Sender: FDA-Public Use
  Company Number: JPI-P-000436

PATIENT
  Age: 38 Year
  Sex: Female
  Weight: 79.3795 kg

DRUGS (6)
  1. XYREM [Suspect]
     Indication: INSOMNIA
     Dosage: 7.25 GM (3.625 GM, 2 IN  1 D), ORAL
     Route: 048
     Dates: start: 20061213, end: 20070122
  2. XYREM [Suspect]
     Indication: NARCOLEPSY
     Dosage: 7.25 GM (3.625 GM, 2 IN  1 D), ORAL
     Route: 048
     Dates: start: 20061213, end: 20070122
  3. LAMICTAL [Concomitant]
  4. ALBUTEROL [Concomitant]
  5. EFFEXOR XR [Concomitant]
  6. LEVOXYL [Concomitant]

REACTIONS (11)
  - BREATH ODOUR [None]
  - DIZZINESS [None]
  - DYSPHAGIA [None]
  - DYSPNOEA [None]
  - HYPERSENSITIVITY [None]
  - NIGHT SWEATS [None]
  - PARAESTHESIA [None]
  - PHARYNGEAL OEDEMA [None]
  - SENSATION OF HEAVINESS [None]
  - THROAT TIGHTNESS [None]
  - VISION BLURRED [None]
